FAERS Safety Report 8986699 (Version 2)
Quarter: 2013Q4

REPORT INFORMATION
  Report Type: Spontaneous
  Country: GB (occurrence: GB)
  Receive Date: 20121227
  Receipt Date: 20131009
  Transmission Date: 20140711
  Serious: Yes (Hospitalization)
  Sender: FDA-Public Use
  Company Number: GB-RANBAXY-2012R1-63484

PATIENT
  Age: 84 Year
  Sex: Female

DRUGS (5)
  1. AMLODIPINE [Suspect]
     Indication: BLOOD PRESSURE
     Dosage: 5 MG, QD
     Route: 065
  2. LISINOPRIL [Suspect]
     Indication: BLOOD PRESSURE
     Dosage: 10 MG, QD
     Route: 065
  3. FOLIC ACID [Concomitant]
     Indication: MUSCLE SPASMS
     Route: 065
  4. PL 00240/0106 GALFER SYRUP [Concomitant]
     Indication: MINERAL SUPPLEMENTATION
     Route: 065
  5. BISOPROLOL FUMERATE [Concomitant]
     Indication: PRODUCT USED FOR UNKNOWN INDICATION
     Route: 065

REACTIONS (4)
  - Hypertension [Unknown]
  - Muscle spasms [Unknown]
  - Drug ineffective [Unknown]
  - Muscle spasms [Unknown]
